FAERS Safety Report 10524682 (Version 2)
Quarter: 2015Q2

REPORT INFORMATION
  Report Type: Spontaneous
  Country: JP (occurrence: None)
  Receive Date: 20141010
  Receipt Date: 20150519
  Transmission Date: 20150821
  Serious: Yes (Other)
  Sender: FDA-Public Use
  Company Number: A201409501

PATIENT
  Age: 40 Year
  Sex: Male

DRUGS (2)
  1. TIVICAY [Suspect]
     Active Substance: DOLUTEGRAVIR SODIUM
     Indication: HIV INFECTION
     Route: 048
     Dates: start: 20140624, end: 20140812
  2. ABACAVIR SULFATE + LAMIVUDINE [Suspect]
     Active Substance: ABACAVIR SULFATE\LAMIVUDINE
     Indication: HIV INFECTION
     Dosage: 1 DF
     Route: 048
     Dates: start: 20140624, end: 20140812

REACTIONS (8)
  - Pyrexia [None]
  - Drug-induced liver injury [None]
  - Headache [None]
  - Rash [None]
  - Oropharyngeal pain [None]
  - Feeling abnormal [None]
  - Upper respiratory tract inflammation [None]
  - Alanine aminotransferase increased [None]

NARRATIVE: CASE EVENT DATE: 2014
